FAERS Safety Report 11431250 (Version 1)
Quarter: 2015Q3

REPORT INFORMATION
  Report Type: Report from Study
  Country: JP (occurrence: JP)
  Receive Date: 20150828
  Receipt Date: 20150828
  Transmission Date: 20151125
  Serious: Yes (Other)
  Sender: FDA-Public Use
  Company Number: JP-ROCHE-1625733

PATIENT
  Sex: Female

DRUGS (1)
  1. TRASTUZUMAB [Suspect]
     Active Substance: TRASTUZUMAB
     Indication: INVASIVE BREAST CARCINOMA
     Route: 065

REACTIONS (14)
  - Cardiac failure [Recovered/Resolved]
  - Depression [Recovered/Resolved]
  - Hypertension [Recovered/Resolved]
  - Acute myocardial infarction [Recovered/Resolved]
  - Vomiting [Unknown]
  - Hypersensitivity [Recovered/Resolved]
  - Left ventricular dysfunction [Recovered/Resolved]
  - Infusion related reaction [Recovered/Resolved]
  - Prinzmetal angina [Recovered/Resolved]
  - Cardiac disorder [Recovered/Resolved]
  - Hepatic function abnormal [Recovered/Resolved]
  - Diarrhoea [Unknown]
  - Decreased appetite [Unknown]
  - Nausea [Unknown]
